FAERS Safety Report 20801416 (Version 1)
Quarter: 2022Q2

REPORT INFORMATION
  Report Type: Spontaneous
  Country: US (occurrence: None)
  Receive Date: 20220508
  Receipt Date: 20220508
  Transmission Date: 20220721
  Serious: No
  Sender: FDA-Public Use
  Company Number: None

PATIENT
  Age: 76 Year
  Sex: Female
  Weight: 77 kg

DRUGS (9)
  1. PAXLOVID [Suspect]
     Active Substance: NIRMATRELVIR\RITONAVIR
     Indication: COVID-19
     Dosage: FREQUENCY : TWICE A DAY;?
     Route: 048
  2. BENZONATATE [Concomitant]
     Active Substance: BENZONATATE
  3. BUPROPION [Concomitant]
     Active Substance: BUPROPION
  4. Vitamin D3 125 mcg [Concomitant]
  5. Diclofenac 1% topical gel [Concomitant]
  6. DOXYCYCLINE [Concomitant]
     Active Substance: DOXYCYCLINE
  7. Esomeprazole 40mg twice a day [Concomitant]
  8. LOSARTAN [Concomitant]
     Active Substance: LOSARTAN
  9. XIIDRA [Concomitant]
     Active Substance: LIFITEGRAST

REACTIONS (3)
  - Dysgeusia [None]
  - Abdominal pain upper [None]
  - Urticaria [None]

NARRATIVE: CASE EVENT DATE: 20220508
